FAERS Safety Report 21581881 (Version 1)
Quarter: 2022Q4

REPORT INFORMATION
  Report Type: Spontaneous
  Country: JP (occurrence: JP)
  Receive Date: 20221111
  Receipt Date: 20221111
  Transmission Date: 20230113
  Serious: Yes (Death)
  Sender: FDA-Public Use
  Company Number: JP-002147023-NVSC2022JP254430

PATIENT

DRUGS (4)
  1. LUTATHERA [Suspect]
     Active Substance: LUTETIUM OXODOTREOTIDE LU-177
     Indication: Product used for unknown indication
     Dosage: UNK, (FORMULATION: INJECTION)
     Route: 042
  2. LUTATHERA [Suspect]
     Active Substance: LUTETIUM OXODOTREOTIDE LU-177
     Dosage: UNK
     Route: 042
  3. ARGININE\LYSINE [Suspect]
     Active Substance: ARGININE\LYSINE
     Indication: Product used for unknown indication
     Dosage: UNK, (FORMULATION: INJECTION)
     Route: 042
  4. ARGININE\LYSINE [Suspect]
     Active Substance: ARGININE\LYSINE
     Dosage: UNK
     Route: 065

REACTIONS (1)
  - Death [Fatal]
